FAERS Safety Report 25175116 (Version 1)
Quarter: 2025Q2

REPORT INFORMATION
  Report Type: Spontaneous
  Country: US (occurrence: US)
  Receive Date: 20250408
  Receipt Date: 20250408
  Transmission Date: 20250717
  Serious: No
  Sender: TG THERAPEUTICS
  Company Number: US-TG THERAPEUTICS INC.-TGT004516

PATIENT

DRUGS (2)
  1. BRIUMVI [Suspect]
     Active Substance: UBLITUXIMAB-XIIY
     Indication: Multiple sclerosis
     Route: 042
     Dates: start: 20240511, end: 20240511
  2. BRIUMVI [Suspect]
     Active Substance: UBLITUXIMAB-XIIY
     Route: 042
     Dates: start: 20240530, end: 20240530

REACTIONS (1)
  - Weight increased [Unknown]
